FAERS Safety Report 6020546-2 (Version None)
Quarter: 2008Q4

REPORT INFORMATION
  Report Type: 
  Country: None (occurrence: None)
  Receive Date: 20081226
  Receipt Date: 20081222
  Transmission Date: 20090506
  Serious: Yes (Hospitalization)
  Sender: FDA-Public Use
  Company Number: DE-ABBOTT-08P-062-0494050-00

PATIENT
  Sex: Male
  Weight: 72 kg

DRUGS (2)
  1. HUMIRA [Suspect]
     Indication: ANKYLOSING SPONDYLITIS
  2. IBUBETA [Concomitant]
     Indication: ANKYLOSING SPONDYLITIS
     Dosage: 1600 MG DAILY
     Route: 048

REACTIONS (2)
  - CLAVICLE FRACTURE [None]
  - FALL [None]
